FAERS Safety Report 8230207-7 (Version None)
Quarter: 2012Q1

REPORT INFORMATION
  Report Type: 
  Country: None (occurrence: None)
  Receive Date: 20120321
  Receipt Date: 20120321
  Transmission Date: 20120608
  Serious: No
  Sender: FDA-Public Use
  Company Number: None

PATIENT
  Age: 49 Year
  Sex: Male
  Weight: 93.6 kg

DRUGS (1)
  1. NIACIN [Suspect]
     Indication: HYPERLIPIDAEMIA
     Dosage: 1000 MG EVERY DAY PO
     Route: 048
     Dates: start: 20100225, end: 20120125

REACTIONS (3)
  - DELIRIUM [None]
  - MOOD ALTERED [None]
  - AGITATION [None]
